FAERS Safety Report 18368060 (Version 1)
Quarter: 2020Q4

REPORT INFORMATION
  Report Type: Report from Study
  Country: CA (occurrence: CA)
  Receive Date: 20201009
  Receipt Date: 20201009
  Transmission Date: 20210114
  Serious: Yes (Hospitalization)
  Sender: FDA-Public Use
  Company Number: CA-ASTRAZENECA-2020SF27673

PATIENT
  Age: 44 Year
  Sex: Female

DRUGS (9)
  1. NUCALA [Suspect]
     Active Substance: MEPOLIZUMAB
     Dosage: 100.0MG UNKNOWN
     Route: 042
  2. FLOVENT [Suspect]
     Active Substance: FLUTICASONE PROPIONATE
     Dosage: UNKNOWN
     Route: 065
  3. SPIRIVA [Suspect]
     Active Substance: TIOTROPIUM BROMIDE MONOHYDRATE
     Route: 065
  4. ARNUITY ELLIPTA [Suspect]
     Active Substance: FLUTICASONE FUROATE
     Route: 065
  5. VENLAFAXINE HYDROCHLORIDE. [Suspect]
     Active Substance: VENLAFAXINE HYDROCHLORIDE
     Dosage: UNKNOWN
     Route: 065
  6. ADVAIR HFA [Suspect]
     Active Substance: FLUTICASONE PROPIONATE\SALMETEROL XINAFOATE
     Route: 055
  7. SALBUTAMOL [Suspect]
     Active Substance: ALBUTEROL
     Dosage: UNKNOWN
     Route: 055
  8. PULMICORT TURBUHALER [Suspect]
     Active Substance: BUDESONIDE
     Dosage: UNKNOWN
     Route: 055
  9. BREO ELLIPTA [Suspect]
     Active Substance: FLUTICASONE FUROATE\VILANTEROL TRIFENATATE
     Route: 055

REACTIONS (19)
  - Asthma [Unknown]
  - Loss of personal independence in daily activities [Recovered/Resolved]
  - Nasal disorder [Recovered/Resolved]
  - Wheezing [Recovered/Resolved]
  - Off label use [Recovered/Resolved]
  - Middle insomnia [Recovered/Resolved]
  - Productive cough [Recovered/Resolved]
  - Therapeutic product effect incomplete [Recovered/Resolved]
  - Dyspnoea [Recovered/Resolved]
  - Pain [Recovered/Resolved]
  - Drug hypersensitivity [Recovered/Resolved]
  - Eosinophil count increased [Recovered/Resolved]
  - Dyspnoea exertional [Recovered/Resolved]
  - Neck pain [Recovered/Resolved]
  - Product use in unapproved indication [Recovered/Resolved]
  - Forced expiratory volume increased [Recovered/Resolved]
  - Joint injury [Recovered/Resolved]
  - Musculoskeletal stiffness [Recovered/Resolved]
  - Obstructive airways disorder [Recovered/Resolved]
